FAERS Safety Report 15240844 (Version 1)
Quarter: 2018Q3

REPORT INFORMATION
  Report Type: Spontaneous
  Country: US (occurrence: US)
  Receive Date: 20180710
  Receipt Date: 20180710
  Transmission Date: 20181010
  Serious: No
  Sender: FDA-Public Use
  Company Number: None

PATIENT
  Age: 34 Year
  Sex: Male

DRUGS (4)
  1. LEVAALBUTEROL [Concomitant]
  2. PULMOZYME [Suspect]
     Active Substance: DORNASE ALFA
     Indication: BRONCHITIS
     Route: 055
     Dates: start: 20130729
  3. ADVAIR HFA [Concomitant]
     Active Substance: FLUTICASONE PROPIONATE\SALMETEROL XINAFOATE
  4. COLISTIN [Concomitant]
     Active Substance: COLISTIN

REACTIONS (1)
  - Pneumonia [None]

NARRATIVE: CASE EVENT DATE: 20180709
